FAERS Safety Report 5825215-7 (Version None)
Quarter: 2008Q3

REPORT INFORMATION
  Report Type: 
  Country: None (occurrence: None)
  Receive Date: 20080729
  Receipt Date: 20080723
  Transmission Date: 20090109
  Serious: Yes (Death, Other)
  Sender: FDA-Public Use
  Company Number: PHHY2008BR14884

PATIENT
  Sex: Male
  Weight: 23.4 kg

DRUGS (10)
  1. SANDIMMUNE [Suspect]
     Indication: PROPHYLAXIS AGAINST GRAFT VERSUS HOST DISEASE
     Dosage: 200 MG, QD
     Dates: start: 20071211, end: 20080110
  2. CEFEPIME [Concomitant]
  3. OMEPRAZOLE [Concomitant]
  4. LEUCOVORIN CALCIUM [Concomitant]
  5. URSODIOL [Concomitant]
  6. BROMOPRIDE [Concomitant]
  7. AMLODIPINE [Concomitant]
  8. ONDANSETRON [Concomitant]
  9. ACYCLOVIR [Concomitant]
  10. FLUCONAZOLE [Concomitant]

REACTIONS (6)
  - AGITATION [None]
  - DEPRESSED LEVEL OF CONSCIOUSNESS [None]
  - IRRITABILITY [None]
  - PARTIAL SEIZURES [None]
  - SOMNOLENCE [None]
  - VISION BLURRED [None]
